FAERS Safety Report 9513905 (Version 3)
Quarter: 2013Q4

REPORT INFORMATION
  Report Type: Report from Study
  Country: ES (occurrence: ES)
  Receive Date: 20130910
  Receipt Date: 20131029
  Transmission Date: 20140711
  Serious: Yes (Hospitalization)
  Sender: FDA-Public Use
  Company Number: ES-PFIZER INC-2013251373

PATIENT
  Age: 70 Year
  Sex: Male
  Weight: 73 kg

DRUGS (2)
  1. TEMSIROLIMUS [Suspect]
     Indication: HORMONE-REFRACTORY PROSTATE CANCER
     Dosage: 15 MG, CYCLIC (DAY 1 AND DAY 16/21 DAYS)
     Route: 042
     Dates: start: 20130822, end: 20130822
  2. DOCETAXEL [Suspect]
     Indication: HORMONE-REFRACTORY PROSTATE CANCER
     Dosage: 50 MG/M2, CYCLIC (21 DAYS)
     Route: 042
     Dates: start: 20130821, end: 20130821

REACTIONS (1)
  - Febrile neutropenia [Recovered/Resolved]
